FAERS Safety Report 7346505-5 (Version None)
Quarter: 2011Q1

REPORT INFORMATION
  Report Type: 
  Country: None (occurrence: None)
  Receive Date: 20110311
  Receipt Date: 20100706
  Transmission Date: 20110831
  Serious: Yes (Hospitalization, Other)
  Sender: FDA-Public Use
  Company Number: US-BAYER-200933583NA

PATIENT
  Sex: Female
  Weight: 55 kg

DRUGS (12)
  1. SYNTHROID [Concomitant]
     Indication: AUTOIMMUNE THYROIDITIS
     Route: 048
  2. CLORAZEPATE DIPOTASSIUM [Concomitant]
     Dosage: DAILY DOSE 7 MG
     Route: 048
  3. SERTRALINE [Concomitant]
     Dosage: DAILY DOSE 50 MG
     Route: 048
  4. YAZ [Suspect]
     Indication: PRODUCT USED FOR UNKNOWN INDICATION
     Route: 048
     Dates: start: 20070301, end: 20080501
  5. IMITREX [Concomitant]
     Indication: MIGRAINE
     Dosage: UNK
     Dates: start: 20080601, end: 20080601
  6. NEURONTIN [Concomitant]
  7. CLORAZEPATE DIPOTASSIUM [Concomitant]
     Dosage: DAILY DOSE 14 MG
     Route: 048
     Dates: start: 20071003
  8. BELLADONNA AND PHENOBARBITONE [Concomitant]
     Dosage: UNK
     Route: 048
     Dates: start: 20080111
  9. INDERAL [Concomitant]
     Indication: MIGRAINE
     Dosage: UNK
     Dates: start: 20080601
  10. ELAVIL [Concomitant]
     Indication: MIGRAINE
  11. AMOXICILLIN AND CLAVULANATE POTASSIUM [Concomitant]
     Dosage: DAILY DOSE 1500 MG
  12. PROMETHAZINE [Concomitant]
     Dosage: DAILY DOSE 12.5 MG

REACTIONS (15)
  - HEADACHE [None]
  - BALANCE DISORDER [None]
  - ANXIETY [None]
  - NAUSEA [None]
  - VISION BLURRED [None]
  - VIITH NERVE PARALYSIS [None]
  - DYSARTHRIA [None]
  - MIGRAINE [None]
  - ANGER [None]
  - FEELING ABNORMAL [None]
  - HEAD INJURY [None]
  - APHASIA [None]
  - CEREBROVASCULAR ACCIDENT [None]
  - OEDEMA PERIPHERAL [None]
  - HYPERCOAGULATION [None]
